FAERS Safety Report 4834966-2 (Version None)
Quarter: 2005Q4

REPORT INFORMATION
  Report Type: 
  Country: None (occurrence: None)
  Receive Date: 20051114
  Receipt Date: 20051102
  Transmission Date: 20060501
  Serious: Yes (Hospitalization)
  Sender: FDA-Public Use
  Company Number: 2005PV003457

PATIENT
  Age: 58 Year
  Sex: Male

DRUGS (10)
  1. BYETTA [Suspect]
     Indication: DIABETES MELLITUS NON-INSULIN-DEPENDENT
     Dosage: 5 MCG;SC
     Route: 058
     Dates: start: 20050901
  2. POTASSIUM [Concomitant]
  3. COREG [Concomitant]
  4. GLIPIZIDE [Concomitant]
  5. SPIRONOLACTONE [Concomitant]
  6. ACTOS [Concomitant]
  7. ZANAFLEX [Concomitant]
  8. TRAMADOL HCL [Concomitant]
  9. TIZANIDINE HCL [Concomitant]
  10. NITROGLYCERIN [Concomitant]

REACTIONS (17)
  - ARRHYTHMIA [None]
  - BLOOD PRESSURE SYSTOLIC INCREASED [None]
  - CARDIAC FLUTTER [None]
  - CARDIOMEGALY [None]
  - DILATATION VENTRICULAR [None]
  - DIZZINESS [None]
  - EJECTION FRACTION DECREASED [None]
  - HEART RATE INCREASED [None]
  - ISCHAEMIC CARDIOMYOPATHY [None]
  - MALAISE [None]
  - MITRAL VALVE INCOMPETENCE [None]
  - NECK PAIN [None]
  - PALPITATIONS [None]
  - SICK SINUS SYNDROME [None]
  - SINUS BRADYCARDIA [None]
  - TINNITUS [None]
  - VENTRICULAR TACHYCARDIA [None]
